FAERS Safety Report 22655799 (Version 3)
Quarter: 2024Q1

REPORT INFORMATION
  Report Type: Spontaneous
  Country: BE (occurrence: BE)
  Receive Date: 20230629
  Receipt Date: 20240103
  Transmission Date: 20240409
  Serious: Yes (Other)
  Sender: FDA-Public Use
  Company Number: BE-BAXTER-2023BAX024151

PATIENT
  Age: 69 Year
  Sex: Female

DRUGS (3)
  1. DOXORUBICIN HYDROCHLORIDE [Suspect]
     Active Substance: DOXORUBICIN HYDROCHLORIDE
     Indication: Synovial sarcoma metastatic
     Dosage: UNK
  2. TRABECTEDIN [Suspect]
     Active Substance: TRABECTEDIN
     Indication: Synovial sarcoma metastatic
     Dosage: 1 DF, 1 DOSE
  3. IFOSFAMIDE [Suspect]
     Active Substance: IFOSFAMIDE
     Indication: Synovial sarcoma metastatic
     Dosage: UNK

REACTIONS (4)
  - Cardiac failure [Recovering/Resolving]
  - Neoplasm progression [Unknown]
  - Drug intolerance [Unknown]
  - Aplasia [Unknown]
